FAERS Safety Report 9369666 (Version 1)
Quarter: 2013Q2

REPORT INFORMATION
  Report Type: Spontaneous
  Country: US (occurrence: US)
  Receive Date: 20130626
  Receipt Date: 20130626
  Transmission Date: 20140414
  Serious: No
  Sender: FDA-Public Use
  Company Number: US-JNJFOC-20130608727

PATIENT
  Sex: Female
  Weight: 99.79 kg

DRUGS (7)
  1. DURAGESIC [Suspect]
     Indication: FIBROMYALGIA
     Route: 062
     Dates: start: 201305
  2. DURAGESIC [Suspect]
     Indication: FIBROMYALGIA
     Route: 062
     Dates: start: 2012, end: 201305
  3. LISINOPRIL [Concomitant]
     Indication: HYPERTENSION
     Route: 048
  4. LYRICA [Concomitant]
     Indication: FIBROMYALGIA
     Route: 048
     Dates: start: 2010
  5. TIZANIDINE [Concomitant]
     Indication: FIBROMYALGIA
     Route: 048
     Dates: start: 2009
  6. AMBIEN [Concomitant]
     Indication: SLEEP DISORDER
     Route: 048
     Dates: start: 2012
  7. NORCO [Concomitant]
     Indication: BREAKTHROUGH PAIN
     Route: 048
     Dates: start: 2009

REACTIONS (4)
  - Wrong technique in drug usage process [Unknown]
  - Wrong technique in drug usage process [Not Recovered/Not Resolved]
  - Product quality issue [Unknown]
  - Therapeutic response decreased [Unknown]
